FAERS Safety Report 19765937 (Version 1)
Quarter: 2021Q3

REPORT INFORMATION
  Report Type: Spontaneous
  Country: US (occurrence: US)
  Receive Date: 20210830
  Receipt Date: 20210830
  Transmission Date: 20211014
  Serious: No
  Sender: FDA-Public Use
  Company Number: US-ANIPHARMA-2020-US-019896

PATIENT
  Age: 66 Year
  Sex: Female

DRUGS (1)
  1. ARIMIDEX [Suspect]
     Active Substance: ANASTROZOLE
     Indication: PRODUCT USED FOR UNKNOWN INDICATION
     Dosage: TAKE 1 TABLET DAILY
     Route: 048
     Dates: start: 20200724, end: 20200914

REACTIONS (4)
  - Rash [Recovered/Resolved]
  - Chest pain [Recovered/Resolved]
  - Skin disorder [Recovered/Resolved]
  - Anxiety [Recovered/Resolved]
